FAERS Safety Report 13819838 (Version 1)
Quarter: 2017Q3

REPORT INFORMATION
  Report Type: Report from Study
  Country: NL (occurrence: NL)
  Receive Date: 20170801
  Receipt Date: 20170801
  Transmission Date: 20171127
  Serious: Yes (Hospitalization)
  Sender: FDA-Public Use
  Company Number: NL-AMGEN-NLDSL2017114361

PATIENT
  Age: 70 Year
  Sex: Female

DRUGS (1)
  1. ARANESP [Suspect]
     Active Substance: DARBEPOETIN ALFA
     Indication: NEPHROGENIC ANAEMIA
     Dosage: 500 MUG (500 MCG/ ML 1.0 ML), Q3WK
     Route: 058

REACTIONS (1)
  - Pain [Unknown]

NARRATIVE: CASE EVENT DATE: 2017
